FAERS Safety Report 6436648-2 (Version None)
Quarter: 2009Q4

REPORT INFORMATION
  Report Type: 
  Country: None (occurrence: None)
  Receive Date: 20091111
  Receipt Date: 20091030
  Transmission Date: 20100525
  Serious: Yes (Life-Threatening, Hospitalization)
  Sender: FDA-Public Use
  Company Number: DE-PFIZER INC-2009280991

PATIENT
  Age: 53 Year
  Sex: Male
  Weight: 67 kg

DRUGS (12)
  1. BLINDED *NO SUBJECT DRUG [Suspect]
     Indication: PROSTATE CANCER
     Dosage: UNK
     Route: 048
     Dates: start: 20090729, end: 20091009
  2. BLINDED *PLACEBO [Suspect]
     Indication: PROSTATE CANCER
     Dosage: UNK
     Route: 048
     Dates: start: 20090729, end: 20091009
  3. BLINDED SUNITINIB MALATE [Suspect]
     Indication: PROSTATE CANCER
     Dosage: UNK
     Route: 048
     Dates: start: 20090729, end: 20091009
  4. PREDNISONE [Suspect]
     Indication: PROSTATE CANCER
     Dosage: 5 MG, 2X/DAY
     Route: 048
     Dates: start: 20090729, end: 20091009
  5. DICLAC [Suspect]
     Dosage: UNK
     Route: 048
     Dates: start: 20090701, end: 20091009
  6. FENTANYL [Concomitant]
     Dosage: UNK
     Route: 062
     Dates: start: 20090701, end: 20091009
  7. ARCOXIA [Concomitant]
     Dosage: UNK
     Route: 048
     Dates: start: 20090824, end: 20091009
  8. KATADOLON [Concomitant]
     Dosage: UNK
     Route: 048
     Dates: start: 20090219, end: 20090810
  9. GABAPENTIN [Concomitant]
     Dosage: UNK
     Route: 048
     Dates: start: 20090824, end: 20091009
  10. LYRICA [Concomitant]
     Dosage: UNK
     Route: 048
     Dates: start: 20090810
  11. MCP ^CT-ARZNEIMITTEL^ [Concomitant]
     Dosage: UNK
     Route: 048
     Dates: start: 20080101
  12. LACTULOSE [Concomitant]
     Dosage: UNK
     Route: 048
     Dates: start: 20080101, end: 20091009

REACTIONS (2)
  - GASTRIC ULCER [None]
  - GASTROINTESTINAL HAEMORRHAGE [None]
